FAERS Safety Report 4766696-X (Version None)
Quarter: 2005Q3

REPORT INFORMATION
  Report Type: 
  Country: None (occurrence: None)
  Receive Date: 20050906
  Receipt Date: 20050819
  Transmission Date: 20060218
  Serious: Yes (Death, Life-Threatening, Hospitalization)
  Sender: FDA-Public Use
  Company Number: WSDF_00359

PATIENT
  Age: 25 Year
  Sex: Female
  Weight: 97.0698 kg

DRUGS (2)
  1. WINRHO SDF [Suspect]
     Indication: IDIOPATHIC THROMBOCYTOPENIC PURPURA
     Dosage: 46.2 MCG/KG ONCE IV
     Route: 042
     Dates: start: 20030812, end: 20030812
  2. PREDNISONE [Concomitant]

REACTIONS (23)
  - ABDOMINAL PAIN [None]
  - ANGIOPATHY [None]
  - ARRHYTHMIA [None]
  - BRAIN OEDEMA [None]
  - CARDIAC ARREST [None]
  - CARDIO-RESPIRATORY ARREST [None]
  - CHEST PAIN [None]
  - DISSEMINATED INTRAVASCULAR COAGULATION [None]
  - DYSPNOEA [None]
  - FIBROSIS [None]
  - GENITAL HAEMORRHAGE [None]
  - HAEMOLYTIC ANAEMIA [None]
  - HAEMORRHAGE [None]
  - HEPATIC CONGESTION [None]
  - HEPATIC NECROSIS [None]
  - HYPOTENSION [None]
  - JAUNDICE [None]
  - MYOCARDITIS [None]
  - PULMONARY CONGESTION [None]
  - PULMONARY OEDEMA [None]
  - RESPIRATORY ARREST [None]
  - SPLENOMEGALY [None]
  - VIRAL INFECTION [None]
